FAERS Safety Report 15081161 (Version 4)
Quarter: 2022Q1

REPORT INFORMATION
  Report Type: Report from Study
  Country: US (occurrence: US)
  Receive Date: 20180628
  Receipt Date: 20220130
  Transmission Date: 20220423
  Serious: Yes (Death, Hospitalization, Other)
  Sender: FDA-Public Use
  Company Number: US-JAZZ-2018-US-007985

PATIENT
  Age: 25 Year
  Sex: Female

DRUGS (6)
  1. DEFITELIO [Suspect]
     Active Substance: DEFIBROTIDE SODIUM
     Indication: Venoocclusive disease
     Dosage: UNK
     Dates: start: 20161022, end: 20161101
  2. ACETYLCYSTEINE [Concomitant]
     Active Substance: ACETYLCYSTEINE
     Indication: Venoocclusive disease
     Dosage: UNK
     Dates: start: 20161021, end: 20161105
  3. URSODIOL [Concomitant]
     Active Substance: URSODIOL
     Indication: Venoocclusive disease
     Dosage: UNK
     Dates: start: 20161203
  4. ANTI THROMBIN III [Concomitant]
     Indication: Venoocclusive disease
  5. HEPARIN [Concomitant]
     Active Substance: HEPARIN SODIUM
     Indication: Venoocclusive disease
  6. METHYLPREDNISOLONE [Concomitant]
     Active Substance: METHYLPREDNISOLONE
     Indication: Venoocclusive disease

REACTIONS (2)
  - Death [Fatal]
  - Off label use [Unknown]

NARRATIVE: CASE EVENT DATE: 20161022
